FAERS Safety Report 10162774 (Version 1)
Quarter: 2014Q2

REPORT INFORMATION
  Report Type: Spontaneous
  Country: GB (occurrence: GB)
  Receive Date: 20140509
  Receipt Date: 20140509
  Transmission Date: 20141212
  Serious: Yes (Other)
  Sender: FDA-Public Use
  Company Number: US-ASTRAZENECA-2014SE31144

PATIENT
  Age: 40 Year
  Sex: Male
  Weight: 107 kg

DRUGS (3)
  1. CANDESARTAN [Suspect]
     Indication: PRODUCT USED FOR UNKNOWN INDICATION
     Route: 048
     Dates: start: 20140408
  2. RAMIPRIL [Concomitant]
     Dosage: UNK
     Dates: start: 20131220
  3. AMLODIPINE [Concomitant]
     Dosage: UNK
     Dates: start: 20131220

REACTIONS (1)
  - Drug-induced liver injury [Not Recovered/Not Resolved]
